FAERS Safety Report 6402015-0 (Version None)
Quarter: 2009Q4

REPORT INFORMATION
  Report Type: 
  Country: None (occurrence: None)
  Receive Date: 20091013
  Receipt Date: 20090929
  Transmission Date: 20100525
  Serious: Yes (Hospitalization)
  Sender: FDA-Public Use
  Company Number: 2009-03940

PATIENT
  Age: 74 Year
  Sex: Male

DRUGS (4)
  1. VELCADE [Suspect]
     Indication: MULTIPLE MYELOMA
     Dosage: 1 MG/M2, INTRAVENOUS
     Route: 042
     Dates: start: 20090406, end: 20090910
  2. ALPHA LIPOIC ACID (THIOCTIC ACID) [Concomitant]
  3. LIPITOR [Concomitant]
  4. LISINOPRIL [Concomitant]

REACTIONS (2)
  - EXOSTOSIS [None]
  - MALIGNANT NEOPLASM PROGRESSION [None]
